FAERS Safety Report 15196302 (Version 1)
Quarter: 2018Q3

REPORT INFORMATION
  Report Type: Spontaneous
  Country: ES (occurrence: ES)
  Receive Date: 20180725
  Receipt Date: 20180725
  Transmission Date: 20181010
  Serious: Yes (Other)
  Sender: FDA-Public Use
  Company Number: ES-PFIZER INC-2018298430

PATIENT
  Age: 31 Year
  Sex: Female

DRUGS (13)
  1. SPIRIVA [Concomitant]
     Active Substance: TIOTROPIUM BROMIDE MONOHYDRATE
     Dosage: UNK
  2. DIAZEPAN PRODES [Concomitant]
     Dosage: UNK
  3. PRISTIQ EXTENDED?RELEASE [Suspect]
     Active Substance: DESVENLAFAXINE SUCCINATE
     Indication: PERSISTENT DEPRESSIVE DISORDER
     Dosage: 50 MG, 1X/DAY
     Route: 048
     Dates: start: 20170111, end: 20171115
  4. SYNALOTIC [Concomitant]
     Dosage: UNK
  5. RILAST [Concomitant]
     Active Substance: BUDESONIDE\FORMOTEROL
     Dosage: UNK
  6. SINGULAIR [Concomitant]
     Active Substance: MONTELUKAST SODIUM
     Dosage: UNK
  7. NEOBRUFEN [Concomitant]
     Dosage: UNK
  8. AEROFLAT /00727201/ [Concomitant]
     Dosage: UNK
  9. OMEPRAZOL CINFA [Concomitant]
     Dosage: UNK
  10. ATROVENT [Concomitant]
     Active Substance: IPRATROPIUM BROMIDE
     Dosage: UNK
  11. NOLOTIL /00473101/ [Concomitant]
     Active Substance: METAMIZOLE\PROPOXYPHENE
     Dosage: UNK
  12. TRANKIMAZIN [Concomitant]
     Active Substance: ALPRAZOLAM
     Dosage: UNK
  13. EBASTEL [Concomitant]
     Active Substance: EBASTINE
     Dosage: UNK

REACTIONS (1)
  - Intentional self-injury [Not Recovered/Not Resolved]

NARRATIVE: CASE EVENT DATE: 20171115
